FAERS Safety Report 9773382 (Version 1)
Quarter: 2013Q4

REPORT INFORMATION
  Report Type: Spontaneous
  Country: ES (occurrence: ES)
  Receive Date: 20131219
  Receipt Date: 20131219
  Transmission Date: 20140711
  Serious: Yes (Other)
  Sender: FDA-Public Use
  Company Number: ES-ASTRAZENECA-2013SE90872

PATIENT
  Sex: Female

DRUGS (2)
  1. TICAGRELOR [Suspect]
     Route: 048
  2. BETA BLOCKERS [Concomitant]

REACTIONS (2)
  - Bradycardia [Unknown]
  - Ischaemia [Unknown]
